FAERS Safety Report 16565580 (Version 1)
Quarter: 2019Q3

REPORT INFORMATION
  Report Type: Spontaneous
  Country: US (occurrence: US)
  Receive Date: 20190712
  Receipt Date: 20190712
  Transmission Date: 20191004
  Serious: Yes (Hospitalization)
  Sender: FDA-Public Use
  Company Number: US-ALKERMES INC.-ALK-2019-003589

PATIENT
  Age: 3 Decade
  Sex: Female

DRUGS (1)
  1. ARISTADA [Suspect]
     Active Substance: ARIPIPRAZOLE LAUROXIL
     Indication: SCHIZOAFFECTIVE DISORDER BIPOLAR TYPE
     Dosage: 1064 MG, Q2MO
     Route: 030
     Dates: start: 20180725

REACTIONS (8)
  - Abnormal behaviour [Recovered/Resolved]
  - Psychotic disorder [Recovered/Resolved]
  - Social problem [Recovered/Resolved]
  - Off label use [Not Recovered/Not Resolved]
  - Gambling [Recovered/Resolved]
  - Theft [Recovered/Resolved]
  - Inappropriate schedule of product administration [Recovered/Resolved]
  - Imprisonment [Not Recovered/Not Resolved]

NARRATIVE: CASE EVENT DATE: 20180725
